FAERS Safety Report 25359445 (Version 1)
Quarter: 2025Q2

REPORT INFORMATION
  Report Type: Spontaneous
  Country: US (occurrence: US)
  Receive Date: 20250526
  Receipt Date: 20250526
  Transmission Date: 20250717
  Serious: No
  Sender: ACCORD
  Company Number: US-Accord-473684

PATIENT
  Sex: Female

DRUGS (15)
  1. METHOTREXATE [Suspect]
     Active Substance: METHOTREXATE
     Indication: Rheumatoid arthritis
  2. VITAMIN D3 [Concomitant]
     Active Substance: CHOLECALCIFEROL
  3. RITUXAN [Concomitant]
     Active Substance: RITUXIMAB
  4. LANTUS [Concomitant]
     Active Substance: INSULIN GLARGINE
  5. EMPAGLIFLOZIN [Concomitant]
     Active Substance: EMPAGLIFLOZIN
  6. CYCLOBENZAPRINE [Concomitant]
     Active Substance: CYCLOBENZAPRINE
  7. HYDROXYCHLOROQUINE [Concomitant]
     Active Substance: HYDROXYCHLOROQUINE
  8. HUMALOG [Concomitant]
     Active Substance: INSULIN LISPRO
  9. ZYRTEC [Concomitant]
     Active Substance: CETIRIZINE HYDROCHLORIDE
  10. UPADACITINIB [Concomitant]
     Active Substance: UPADACITINIB
  11. HUMIRA [Concomitant]
     Active Substance: ADALIMUMAB
  12. ABATACEPT [Concomitant]
     Active Substance: ABATACEPT
  13. CIMZIA [Concomitant]
     Active Substance: CERTOLIZUMAB PEGOL
  14. METHOTREXATE [Concomitant]
     Active Substance: METHOTREXATE
  15. TOFACITINIB [Concomitant]
     Active Substance: TOFACITINIB

REACTIONS (1)
  - Hypertransaminasaemia [Unknown]
